FAERS Safety Report 23479121 (Version 3)
Quarter: 2024Q2

REPORT INFORMATION
  Report Type: Report from Study
  Country: US (occurrence: US)
  Receive Date: 20240205
  Receipt Date: 20240415
  Transmission Date: 20240715
  Serious: Yes (Death)
  Sender: FDA-Public Use
  Company Number: US-DECIPHERA PHARMACEUTICALS LLC-2024US000083

PATIENT
  Age: 66 Year
  Sex: Female

DRUGS (3)
  1. QINLOCK [Suspect]
     Active Substance: RIPRETINIB
     Indication: Gastrointestinal stromal tumour
     Dosage: 150 MILLIGRAM, QD
     Route: 048
     Dates: start: 20240125, end: 202403
  2. QINLOCK [Suspect]
     Active Substance: RIPRETINIB
     Indication: Metastases to liver
     Dosage: 100 MILLIGRAM, QD
     Route: 048
     Dates: start: 202403, end: 202403
  3. QINLOCK [Suspect]
     Active Substance: RIPRETINIB
     Indication: Cholangiocarcinoma

REACTIONS (2)
  - Death [Fatal]
  - Off label use [Unknown]

NARRATIVE: CASE EVENT DATE: 20240324
